FAERS Safety Report 16050041 (Version 2)
Quarter: 2019Q2

REPORT INFORMATION
  Report Type: Spontaneous
  Country: JP (occurrence: JP)
  Receive Date: 20190308
  Receipt Date: 20190422
  Transmission Date: 20190711
  Serious: Yes (Disabling)
  Sender: FDA-Public Use
  Company Number: JP-ACCORD-110996

PATIENT
  Age: 60 Year
  Sex: Female

DRUGS (1)
  1. AMITRIPTYLINE [Suspect]
     Active Substance: AMITRIPTYLINE
     Indication: DENTAL DYSAESTHESIA
     Dosage: 10 MG/D

REACTIONS (2)
  - Gait disturbance [Recovering/Resolving]
  - Nausea [Recovering/Resolving]
